FAERS Safety Report 10565212 (Version 1)
Quarter: 2014Q4

REPORT INFORMATION
  Report Type: Spontaneous
  Country: US (occurrence: None)
  Receive Date: 20141104
  Receipt Date: 20141104
  Transmission Date: 20150529
  Serious: No
  Sender: FDA-Public Use
  Company Number: None

PATIENT
  Age: 28 Year
  Sex: Female

DRUGS (1)
  1. HUMIRA [Suspect]
     Active Substance: ADALIMUMAB
     Indication: PSORIATIC ARTHROPATHY
     Dosage: 40MG?EVERY 2 WEEKS?SUBCUTANEOUS
     Route: 058
     Dates: start: 20141031

REACTIONS (3)
  - Product contamination [None]
  - Product packaging quantity issue [None]
  - Product quality issue [None]

NARRATIVE: CASE EVENT DATE: 20141031
